FAERS Safety Report 22399789 (Version 1)
Quarter: 2023Q2

REPORT INFORMATION
  Report Type: Spontaneous
  Country: SE (occurrence: SE)
  Receive Date: 20230602
  Receipt Date: 20230602
  Transmission Date: 20230721
  Serious: Yes (Other)
  Sender: FDA-Public Use
  Company Number: None

PATIENT
  Age: 53 Year
  Sex: Female
  Weight: 69 kg

DRUGS (1)
  1. SULFASALAZINE [Suspect]
     Active Substance: SULFASALAZINE
     Indication: Rheumatic disorder
     Dosage: 500 MG, 2X/DAY
     Route: 048
     Dates: start: 20230508, end: 20230522

REACTIONS (10)
  - Hypoaesthesia oral [Recovering/Resolving]
  - Paraesthesia [Recovering/Resolving]
  - Lip blister [Recovering/Resolving]
  - Paraesthesia oral [Recovering/Resolving]
  - Oral mucosal blistering [Recovering/Resolving]
  - Pharyngeal paraesthesia [Recovering/Resolving]
  - Urticaria [Recovering/Resolving]
  - Pyrexia [Recovering/Resolving]
  - Rash [Not Recovered/Not Resolved]
  - Off label use [Unknown]

NARRATIVE: CASE EVENT DATE: 20230508
